FAERS Safety Report 11356597 (Version 1)
Quarter: 2015Q3

REPORT INFORMATION
  Report Type: Spontaneous
  Country: US (occurrence: US)
  Receive Date: 20150803
  Receipt Date: 20150803
  Transmission Date: 20151125
  Serious: No
  Sender: FDA-Public Use
  Company Number: US-ELI_LILLY_AND_COMPANY-US201203005153

PATIENT
  Age: 74 Year
  Sex: Female

DRUGS (4)
  1. ATENOLOL. [Concomitant]
     Active Substance: ATENOLOL
  2. METHOTREXATE [Concomitant]
     Active Substance: METHOTREXATE
  3. LITHIUM. [Concomitant]
     Active Substance: LITHIUM
  4. ZYPREXA [Suspect]
     Active Substance: OLANZAPINE
     Indication: BIPOLAR DISORDER
     Dosage: 5 MG, QD

REACTIONS (4)
  - Arthritis [Unknown]
  - Immune system disorder [Unknown]
  - Tremor [Unknown]
  - Wrong technique in product usage process [Unknown]
